FAERS Safety Report 4972154-X (Version None)
Quarter: 2006Q2

REPORT INFORMATION
  Report Type: 
  Country: None (occurrence: None)
  Receive Date: 20060413
  Receipt Date: 20060403
  Transmission Date: 20061013
  Serious: Yes (Death)
  Sender: FDA-Public Use
  Company Number: US-JNJFOC-20060400615

PATIENT
  Age: 65 Year
  Sex: Female
  Weight: 58.97 kg

DRUGS (1)
  1. HALDOL [Suspect]
     Indication: PAIN
     Dosage: UNSPECIFIED DOSE 2-3 TIMES DAILY
     Route: 042

REACTIONS (4)
  - INCORRECT ROUTE OF DRUG ADMINISTRATION [None]
  - INTESTINAL OBSTRUCTION [None]
  - RESPIRATORY FAILURE [None]
  - WEIGHT INCREASED [None]
